FAERS Safety Report 17895278 (Version 1)
Quarter: 2020Q2

REPORT INFORMATION
  Report Type: Spontaneous
  Country: US (occurrence: US)
  Receive Date: 20200612
  Receipt Date: 20200612
  Transmission Date: 20200714
  Serious: No
  Sender: FDA-Public Use
  Company Number: None

PATIENT
  Age: 60 Year
  Sex: Female

DRUGS (1)
  1. ILUMYA [Suspect]
     Active Substance: TILDRAKIZUMAB-ASMN
     Indication: PSORIASIS
     Dosage: ?          OTHER FREQUENCY:WK 0 AND 4 THEN EVERY12 WEEKS AS DIRECTED;?
     Route: 058

REACTIONS (3)
  - Dehydration [None]
  - Liver abscess [None]
  - Pyrexia [None]
